FAERS Safety Report 8244942-8 (Version None)
Quarter: 2012Q1

REPORT INFORMATION
  Report Type: 
  Country: None (occurrence: None)
  Receive Date: 20120329
  Receipt Date: 20110929
  Transmission Date: 20120608
  Serious: No
  Sender: FDA-Public Use
  Company Number: US-MYLANLABS-2011S1020490

PATIENT
  Age: 36 Year
  Sex: Female
  Weight: 76.2 kg

DRUGS (4)
  1. FENTANYL-100 [Suspect]
     Indication: FIBROMYALGIA
     Dosage: CHANGES Q. 48 HOURS.
     Route: 062
  2. MORPHINE SULFATE [Concomitant]
     Indication: BREAKTHROUGH PAIN
  3. SOMA [Concomitant]
     Indication: MUSCLE SPASMS
     Dates: start: 20090101
  4. THYROID TAB [Concomitant]
     Indication: HYPOTHYROIDISM
     Dates: start: 20100101

REACTIONS (3)
  - FIBROMYALGIA [None]
  - DRUG INEFFECTIVE [None]
  - DRUG WITHDRAWAL SYNDROME [None]
